FAERS Safety Report 5415421-8 (Version None)
Quarter: 2007Q3

REPORT INFORMATION
  Report Type: 
  Country: None (occurrence: None)
  Receive Date: 20070815
  Receipt Date: 20070511
  Transmission Date: 20080115
  Serious: Yes (Disabling)
  Sender: FDA-Public Use
  Company Number: DE-BRISTOL-MYERS SQUIBB COMPANY-12613303

PATIENT
  Age: 56 Year
  Sex: Male

DRUGS (2)
  1. CETUXIMAB [Suspect]
     Indication: COLORECTAL CANCER
     Dosage: MOST RECENT INFUSION 02-JUN-2004-PATIENT RECEIVED 7 DOSES-DELAYED 07-JUN-2004
     Route: 041
     Dates: start: 20040414
  2. IRINOTECAN HCL [Suspect]
     Indication: COLORECTAL CANCER
     Dosage: MOST RECENT INFUSION 02-JUN-2004-DELAYED 07-JUN-2004
     Route: 042
     Dates: start: 20040414

REACTIONS (5)
  - CONFUSIONAL STATE [None]
  - DIZZINESS [None]
  - HALLUCINATION [None]
  - HEADACHE [None]
  - MALIGNANT NEOPLASM PROGRESSION [None]
